FAERS Safety Report 10537969 (Version 1)
Quarter: 2014Q4

REPORT INFORMATION
  Report Type: Spontaneous
  Country: PR (occurrence: US)
  Receive Date: 20141023
  Receipt Date: 20141023
  Transmission Date: 20150529
  Serious: No
  Sender: FDA-Public Use
  Company Number: PR-PFIZER INC-2014289027

PATIENT
  Age: 64 Year
  Sex: Female

DRUGS (1)
  1. TOVIAZ [Suspect]
     Active Substance: FESOTERODINE FUMARATE
     Dosage: 4 MG, UNK

REACTIONS (3)
  - Hyperhidrosis [Unknown]
  - Dry mouth [Unknown]
  - Dry skin [Unknown]
